FAERS Safety Report 16485571 (Version 1)
Quarter: 2019Q2

REPORT INFORMATION
  Report Type: Spontaneous
  Country: US (occurrence: US)
  Receive Date: 20190517
  Receipt Date: 20190517
  Transmission Date: 20190711
  Serious: No
  Sender: FDA-Public Use
  Company Number: None

PATIENT
  Sex: Female

DRUGS (1)
  1. PROGESTERONE/SESAME MDV 50MG/ML STERIS LABS [Suspect]
     Active Substance: PROGESTERONE
     Indication: INFERTILITY FEMALE
     Route: 030
     Dates: start: 20190424

REACTIONS (1)
  - Dizziness [None]
